FAERS Safety Report 9277506 (Version 1)
Quarter: 2013Q2

REPORT INFORMATION
  Report Type: Other
  Country: PL (occurrence: PL)
  Receive Date: 20130508
  Receipt Date: 20130508
  Transmission Date: 20140414
  Serious: Yes (Other)
  Sender: FDA-Public Use
  Company Number: PL-ACTELION-A-CH2013-82835

PATIENT
  Age: 21 Year
  Sex: Male

DRUGS (1)
  1. ZAVESCA [Suspect]
     Indication: NIEMANN-PICK DISEASE
     Dosage: 300 MG, QD
     Route: 048
     Dates: start: 200902

REACTIONS (6)
  - Cerebellar syndrome [Unknown]
  - Concomitant disease aggravated [Unknown]
  - Fall [Unknown]
  - Apathy [Unknown]
  - Hyperreflexia [Unknown]
  - Apraxia [Unknown]
